FAERS Safety Report 6615270-9 (Version None)
Quarter: 2010Q1

REPORT INFORMATION
  Report Type: 
  Country: None (occurrence: None)
  Receive Date: 20100305
  Receipt Date: 20100222
  Transmission Date: 20100710
  Serious: Yes (Death, Other)
  Sender: FDA-Public Use
  Company Number: ES-GENZYME-CLOF-1000877

PATIENT
  Age: 5 Year
  Sex: Male

DRUGS (5)
  1. EVOLTRA [Suspect]
     Indication: ACUTE LYMPHOCYTIC LEUKAEMIA
     Dosage: UNK UNK, QDX5
     Route: 065
     Dates: start: 20091017, end: 20091021
  2. CYCLOPHOSPHAMIDE [Suspect]
     Indication: ACUTE LYMPHOCYTIC LEUKAEMIA
     Dosage: UNK UNK, QDX5
     Route: 042
     Dates: start: 20091017, end: 20091021
  3. ETOPOSIDE [Suspect]
     Indication: ACUTE LYMPHOCYTIC LEUKAEMIA
     Dosage: UNK UNK, QDX5
     Route: 042
     Dates: start: 20091017, end: 20091021
  4. AMBISOME [Suspect]
     Indication: FUNGAL INFECTION
     Dosage: 50 MG, UNK
     Route: 065
     Dates: start: 20091015, end: 20091019
  5. TARGOCID [Suspect]
     Indication: BACTERIAL INFECTION
     Dosage: 320 MG, UNK
     Route: 042
     Dates: start: 20091005, end: 20091019

REACTIONS (2)
  - HYPOKALAEMIA [None]
  - SEPTIC SHOCK [None]
